FAERS Safety Report 20219447 (Version 3)
Quarter: 2022Q1

REPORT INFORMATION
  Report Type: Report from Study
  Country: NO (occurrence: None)
  Receive Date: 20211222
  Receipt Date: 20220111
  Transmission Date: 20220423
  Serious: Yes (Hospitalization)
  Sender: FDA-Public Use
  Company Number: NO-Eisai Medical Research-EC-2021-105370

PATIENT
  Age: 62 Year
  Sex: Male
  Weight: 96.5 kg

DRUGS (7)
  1. LENVATINIB [Suspect]
     Active Substance: LENVATINIB
     Indication: Clear cell renal cell carcinoma
     Route: 048
     Dates: start: 20211130
  2. PEMBROLIZUMAB [Suspect]
     Active Substance: PEMBROLIZUMAB
     Indication: Clear cell renal cell carcinoma
     Route: 041
     Dates: start: 20211130, end: 20211130
  3. FRAGMIN [Suspect]
     Active Substance: DALTEPARIN SODIUM
     Indication: Tumour thrombosis
     Route: 058
     Dates: start: 20211109, end: 20211214
  4. FRAGMIN [Suspect]
     Active Substance: DALTEPARIN SODIUM
     Route: 058
     Dates: start: 20211109, end: 20211214
  5. FERRIC SULFATE [Concomitant]
     Active Substance: FERRIC SULFATE
     Dates: start: 201612
  6. DUTASTERIDE\TAMSULOSIN [Concomitant]
     Active Substance: DUTASTERIDE\TAMSULOSIN
     Dates: start: 20210906
  7. MIRABEGRON [Concomitant]
     Active Substance: MIRABEGRON
     Dates: start: 20211109

REACTIONS (1)
  - Rectal haemorrhage [Recovered/Resolved]

NARRATIVE: CASE EVENT DATE: 20211214
